FAERS Safety Report 21397415 (Version 1)
Quarter: 2022Q3

REPORT INFORMATION
  Report Type: Spontaneous
  Country: US (occurrence: None)
  Receive Date: 20220929
  Receipt Date: 20220929
  Transmission Date: 20221027
  Serious: No
  Sender: FDA-Public Use
  Company Number: None

PATIENT
  Age: 56 Year
  Sex: Male

DRUGS (1)
  1. SKYRIZI [Suspect]
     Active Substance: RISANKIZUMAB-RZAA
     Indication: Psoriasis
     Dosage: INJECT 150MG(1 PEN)  SUBCUTANEOUSLY AT WEEK 0 AND WEEK 4   AS DIRECTED?
     Route: 058
     Dates: start: 202206

REACTIONS (2)
  - COVID-19 [None]
  - Pulmonary congestion [None]
